FAERS Safety Report 4357317-9 (Version None)
Quarter: 2004Q2

REPORT INFORMATION
  Report Type: 
  Country: None (occurrence: None)
  Receive Date: 20040512
  Receipt Date: 20040512
  Transmission Date: 20050107
  Serious: Yes (Other)
  Sender: FDA-Public Use
  Company Number: None

PATIENT
  Age: 84 Year
  Sex: Female

DRUGS (1)
  1. UNASYN [Suspect]
     Indication: PNEUMONIA
     Dosage: 1.5 GM IVPB Q8H
     Route: 042
     Dates: start: 20031104, end: 20031110

REACTIONS (1)
  - THROMBOCYTOPENIA [None]
